FAERS Safety Report 6430317-0 (Version None)
Quarter: 2009Q4

REPORT INFORMATION
  Report Type: 
  Country: None (occurrence: None)
  Receive Date: 20091105
  Receipt Date: 20091105
  Transmission Date: 20100525
  Serious: No
  Sender: FDA-Public Use
  Company Number: None

PATIENT
  Age: 31 Year
  Weight: 58.9676 kg

DRUGS (1)
  1. YAZ [Suspect]
     Indication: ORAL CONTRACEPTION
     Dosage: 1 TABLET 1X DAILY
     Dates: start: 20081001, end: 20090801

REACTIONS (3)
  - AMENORRHOEA [None]
  - NO THERAPEUTIC RESPONSE [None]
  - VULVOVAGINAL MYCOTIC INFECTION [None]
